FAERS Safety Report 21348907 (Version 2)
Quarter: 2022Q4

REPORT INFORMATION
  Report Type: Spontaneous
  Country: US (occurrence: US)
  Receive Date: 20220919
  Receipt Date: 20221014
  Transmission Date: 20230113
  Serious: No
  Sender: FDA-Public Use
  Company Number: US-BRISTOL-MYERS SQUIBB COMPANY-2022-107431

PATIENT
  Age: 64 Year
  Sex: Female
  Weight: 79.38 kg

DRUGS (3)
  1. REVLIMID [Suspect]
     Active Substance: LENALIDOMIDE
     Indication: Myelodysplastic syndrome
     Dosage: FREQUENCY: DAILY DAYS 1-28
     Route: 048
     Dates: start: 20220909
  2. REVLIMID [Suspect]
     Active Substance: LENALIDOMIDE
     Dosage: DAY 1-28 Q 28 DAYS
     Route: 048
     Dates: start: 20220908
  3. REVLIMID [Suspect]
     Active Substance: LENALIDOMIDE
     Dosage: DAY 1-28 Q 28 DAY
     Route: 048

REACTIONS (5)
  - White blood cell count decreased [Unknown]
  - Nausea [Recovered/Resolved]
  - Vomiting [Recovered/Resolved]
  - Diarrhoea [Recovered/Resolved]
  - Platelet count decreased [Unknown]

NARRATIVE: CASE EVENT DATE: 20220909
